FAERS Safety Report 13250587 (Version 1)
Quarter: 2017Q1

REPORT INFORMATION
  Report Type: Report from Study
  Country: CN (occurrence: CN)
  Receive Date: 20170219
  Receipt Date: 20170219
  Transmission Date: 20170428
  Serious: Yes (Death, Life-Threatening)
  Sender: FDA-Public Use
  Company Number: CN-ROCHE-1677378

PATIENT
  Sex: Female
  Weight: 56 kg

DRUGS (1)
  1. AVASTIN [Suspect]
     Active Substance: BEVACIZUMAB
     Indication: COLON CANCER
     Route: 041
     Dates: start: 20150421

REACTIONS (3)
  - Gastric ulcer [Recovering/Resolving]
  - Intestinal obstruction [Recovering/Resolving]
  - Pulmonary mass [Fatal]
